APPROVED DRUG PRODUCT: ESTRADIOL AND NORETHINDRONE ACETATE
Active Ingredient: ESTRADIOL; NORETHINDRONE ACETATE
Strength: 1MG;0.5MG
Dosage Form/Route: TABLET;ORAL
Application: A079193 | Product #001 | TE Code: AB
Applicant: BARR LABORATORIES INC
Approved: May 11, 2010 | RLD: No | RS: No | Type: RX